FAERS Safety Report 4476901-5 (Version None)
Quarter: 2004Q3

REPORT INFORMATION
  Report Type: 
  Country: None (occurrence: None)
  Receive Date: 20040923
  Receipt Date: 20040615
  Transmission Date: 20050211
  Serious: No
  Sender: FDA-Public Use
  Company Number: USA040670303

PATIENT
  Age: 67 Year
  Sex: Female
  Weight: 52 kg

DRUGS (6)
  1. FORTEO [Suspect]
     Indication: OSTEOPOROSIS
     Dates: start: 20040501
  2. LISINOPRIL [Concomitant]
  3. LIPITOR [Concomitant]
  4. QUININE [Concomitant]
  5. MULTIVITAMIN [Concomitant]
  6. CALCIUM [Concomitant]

REACTIONS (1)
  - INJECTION SITE HAEMORRHAGE [None]
